FAERS Safety Report 9329123 (Version 1)
Quarter: 2013Q2

REPORT INFORMATION
  Report Type: Spontaneous
  Country: US (occurrence: US)
  Receive Date: 20130604
  Receipt Date: 20130604
  Transmission Date: 20140414
  Serious: Yes (Hospitalization)
  Sender: FDA-Public Use
  Company Number: US-GLAXOSMITHKLINE-A1025569A

PATIENT
  Age: 60 Year
  Sex: Female

DRUGS (1)
  1. ARIXTRA [Suspect]
     Indication: PRODUCT USED FOR UNKNOWN INDICATION
     Dosage: 7.5MG UNKNOWN
     Dates: start: 201304

REACTIONS (5)
  - Lung carcinoma cell type unspecified stage IV [Unknown]
  - Thrombosis [Unknown]
  - Malaise [Unknown]
  - Movement disorder [Unknown]
  - Speech disorder [Unknown]
